FAERS Safety Report 7014903-5 (Version None)
Quarter: 2010Q3

REPORT INFORMATION
  Report Type: 
  Country: None (occurrence: None)
  Receive Date: 20100927
  Receipt Date: 20091216
  Transmission Date: 20110219
  Serious: No
  Sender: FDA-Public Use
  Company Number: US-ASTRAZENECA-2009SE32384

PATIENT
  Age: 58 Year
  Sex: Female

DRUGS (5)
  1. ARIMIDEX [Suspect]
     Indication: BREAST CANCER
     Route: 048
     Dates: start: 20090101
  2. COREG [Concomitant]
  3. VYTORIN [Concomitant]
  4. FUROSEMIDE [Concomitant]
  5. PRED FORTE DROPS [Concomitant]

REACTIONS (1)
  - RETINAL DISORDER [None]
